FAERS Safety Report 7969850-9 (Version None)
Quarter: 2011Q4

REPORT INFORMATION
  Report Type: 
  Country: None (occurrence: None)
  Receive Date: 20111121
  Receipt Date: 20110802
  Transmission Date: 20120403
  Serious: No
  Sender: FDA-Public Use
  Company Number: 1000022615

PATIENT
  Age: 29 Year
  Sex: Female

DRUGS (7)
  1. LASIX [Concomitant]
  2. FLEXERIL (CYCLOBENZAPRINE) (CYCLOBENZAPRINE) [Concomitant]
  3. FLONASE (FLUTICASONE PROPIONATE) (FLUTICASONE PROPIONATE) [Concomitant]
  4. ADIPEX-P [Suspect]
  5. ALLEGRA (FEXOFENADINE HYDROCHLORIDE) (FEXOFENADINE HYDROCHLORIDE) [Concomitant]
  6. AMBIEN [Concomitant]
  7. VIIBRYD [Suspect]
     Indication: BIPOLAR I DISORDER
     Dosage: 10 MG (10 MG, 1 IN 1 D), ORAL
     Route: 048
     Dates: start: 20110727

REACTIONS (4)
  - FEELING COLD [None]
  - PSORIASIS [None]
  - PARAESTHESIA [None]
  - DEPRESSED MOOD [None]
